FAERS Safety Report 9030284 (Version 6)
Quarter: 2016Q1

REPORT INFORMATION
  Report Type: Spontaneous
  Country: US (occurrence: US)
  Receive Date: 20130122
  Receipt Date: 20160224
  Transmission Date: 20160526
  Serious: Yes (Hospitalization, Other)
  Sender: FDA-Public Use
  Company Number: US-009507513-1301USA009740

PATIENT
  Sex: Female
  Weight: 77.98 kg

DRUGS (4)
  1. FOSAMAX [Suspect]
     Active Substance: ALENDRONATE SODIUM
     Indication: OSTEOPOROSIS
     Dosage: 10 MG, QD
     Route: 048
     Dates: end: 200110
  2. BONIVA [Suspect]
     Active Substance: IBANDRONATE SODIUM
     Indication: OSTEOPOROSIS
     Dosage: 150 MG, QM
     Route: 048
     Dates: start: 200701, end: 200810
  3. FOSAMAX [Suspect]
     Active Substance: ALENDRONATE SODIUM
     Dosage: 70 MG, QW
     Route: 048
     Dates: start: 200111, end: 200612
  4. CALCIUM (UNSPECIFIED) [Concomitant]
     Active Substance: CALCIUM
     Dosage: 600 MG, BID
     Dates: start: 1998

REACTIONS (35)
  - Macular degeneration [Unknown]
  - Pulmonary fibrosis [Not Recovered/Not Resolved]
  - Femur fracture [Recovered/Resolved]
  - Hypertension [Unknown]
  - Osteoarthritis [Unknown]
  - Diverticulitis [Unknown]
  - Contusion [Unknown]
  - Tibia fracture [Unknown]
  - Radius fracture [Unknown]
  - Osteoarthritis [Unknown]
  - Diverticulum [Unknown]
  - Carotid artery stenosis [Unknown]
  - Pneumonia [Unknown]
  - Lower limb fracture [Unknown]
  - Arthralgia [Unknown]
  - Urticaria [Unknown]
  - Malabsorption [Unknown]
  - Dental implantation [Unknown]
  - Hyperlipidaemia [Unknown]
  - Open reduction of fracture [Unknown]
  - Femur fracture [Recovered/Resolved]
  - Ankle fracture [Unknown]
  - Intramedullary rod insertion [Unknown]
  - Tooth fracture [Unknown]
  - Hepatitis B [Unknown]
  - Tooth disorder [Unknown]
  - Spondylolisthesis [Unknown]
  - Bone lesion [Unknown]
  - Intramedullary rod insertion [Unknown]
  - Femur fracture [Unknown]
  - Breast mass [Not Recovered/Not Resolved]
  - Foot fracture [Unknown]
  - Osteopenia [Unknown]
  - Excoriation [Unknown]
  - Pain in extremity [Unknown]

NARRATIVE: CASE EVENT DATE: 19980203
